FAERS Safety Report 13812690 (Version 1)
Quarter: 2017Q3

REPORT INFORMATION
  Report Type: Spontaneous
  Country: TR (occurrence: TR)
  Receive Date: 20170729
  Receipt Date: 20170729
  Transmission Date: 20171127
  Serious: Yes (Hospitalization, Other)
  Sender: FDA-Public Use
  Company Number: TR-009507513-1707TUR006345

PATIENT
  Age: 32 Year
  Sex: Female

DRUGS (4)
  1. ASPIRIN. [Concomitant]
     Active Substance: ASPIRIN
  2. PROGESTERONE. [Concomitant]
     Active Substance: PROGESTERONE
  3. PUREGON [Suspect]
     Active Substance: FOLLITROPIN
     Indication: IN VITRO FERTILISATION
     Dosage: 225 IU
  4. PUREGON [Suspect]
     Active Substance: FOLLITROPIN
     Dosage: 150 IU

REACTIONS (2)
  - Cholestasis of pregnancy [Recovered/Resolved]
  - Ovarian hyperstimulation syndrome [Recovered/Resolved]
